FAERS Safety Report 24811964 (Version 1)
Quarter: 2025Q1

REPORT INFORMATION
  Report Type: Spontaneous
  Country: US (occurrence: US)
  Receive Date: 20250106
  Receipt Date: 20250106
  Transmission Date: 20250409
  Serious: No
  Sender: BRAINTREE
  Company Number: US-BRAINTREE LABORATORIES, INC.-2024BTE00212

PATIENT
  Age: 77 Year
  Sex: Male
  Weight: 98.883 kg

DRUGS (8)
  1. SUTAB [Suspect]
     Active Substance: MAGNESIUM SULFATE\POTASSIUM CHLORIDE\SODIUM SULFATE
     Indication: Colonoscopy
     Route: 048
     Dates: start: 20240411, end: 20240411
  2. ELIQUIS [Concomitant]
     Active Substance: APIXABAN
     Dates: end: 202404
  3. PLAVIX [Concomitant]
     Active Substance: CLOPIDOGREL BISULFATE
     Dates: end: 202404
  4. OZEMPIC [Concomitant]
     Active Substance: SEMAGLUTIDE
     Dates: end: 202404
  5. METFORMIN [Concomitant]
     Active Substance: METFORMIN HYDROCHLORIDE
     Dates: end: 2024
  6. VALSARTAN [Concomitant]
     Active Substance: VALSARTAN
  7. METOPROLOL [Concomitant]
     Active Substance: METOPROLOL
  8. ATORVASTATIN [Concomitant]
     Active Substance: ATORVASTATIN
     Indication: Blood cholesterol

REACTIONS (5)
  - Tremor [Recovered/Resolved]
  - Erythema [Recovered/Resolved]
  - Headache [Recovered/Resolved]
  - Pallor [Recovered/Resolved]
  - Drug hypersensitivity [Recovered/Resolved]

NARRATIVE: CASE EVENT DATE: 20240411
